FAERS Safety Report 4717794-8 (Version None)
Quarter: 2005Q3

REPORT INFORMATION
  Report Type: 
  Country: None (occurrence: None)
  Receive Date: 20050718
  Receipt Date: 20050718
  Transmission Date: 20060218
  Serious: Yes (Other)
  Sender: FDA-Public Use
  Company Number: None

PATIENT
  Sex: Male

DRUGS (2)
  1. XALATAN [Suspect]
     Indication: INTRAOCULAR PRESSURE INCREASED
     Dosage: 1 DROP 1 EYE BEDTIME OPTHALMIC
     Route: 047
     Dates: start: 20050301, end: 20050701
  2. TETRACYCLINE [Suspect]
     Indication: ROSACEA
     Dosage: 1 CAPSULE TWICE DAILY ORAL
     Route: 048
     Dates: start: 20050530, end: 20050701

REACTIONS (3)
  - DRY EYE [None]
  - EYE IRRITATION [None]
  - ROSACEA [None]
